FAERS Safety Report 9859473 (Version 1)
Quarter: 2014Q1

REPORT INFORMATION
  Report Type: Spontaneous
  Country: US (occurrence: US)
  Receive Date: 20140131
  Receipt Date: 20140131
  Transmission Date: 20141002
  Serious: No
  Sender: FDA-Public Use
  Company Number: US-009507513-1401USA007682

PATIENT
  Sex: Male

DRUGS (1)
  1. MIRALAX [Suspect]
     Indication: HAEMORRHOIDS
     Dosage: 17 G, QD
     Route: 048

REACTIONS (5)
  - Frequent bowel movements [Unknown]
  - Abnormal faeces [Unknown]
  - Overdose [Unknown]
  - Off label use [Unknown]
  - Gastrointestinal motility disorder [Unknown]
